FAERS Safety Report 18543943 (Version 6)
Quarter: 2022Q1

REPORT INFORMATION
  Report Type: Spontaneous
  Country: US (occurrence: US)
  Receive Date: 20201125
  Receipt Date: 20220211
  Transmission Date: 20220423
  Serious: Yes (Hospitalization)
  Sender: FDA-Public Use
  Company Number: US-GLOBAL BLOOD THERAPEUTICS INC-US-GBT-20-03730

PATIENT
  Age: 18 Year
  Sex: Male

DRUGS (9)
  1. OXBRYTA [Suspect]
     Active Substance: VOXELOTOR
     Indication: Sickle cell disease
     Route: 048
     Dates: start: 20201106, end: 20201123
  2. HUMAN RED BLOOD CELL [Concomitant]
     Active Substance: HUMAN RED BLOOD CELL
     Indication: Sickle cell disease
     Dosage: 3 UNITS
     Dates: start: 20201125, end: 20201125
  3. HYDROXYUREA [Concomitant]
     Active Substance: HYDROXYUREA
     Indication: Product used for unknown indication
     Dosage: NOT PROVIDED
  4. ROXICODONE [Concomitant]
     Active Substance: OXYCODONE HYDROCHLORIDE
     Indication: Sickle cell disease
     Route: 048
     Dates: start: 20181022
  5. CHOLECALCIFEROL, VITAMIN D3 [Concomitant]
     Indication: Sickle cell disease
     Dosage: 1000 UNITS
     Route: 048
     Dates: start: 20171102, end: 20211126
  6. MOTRIN [Concomitant]
     Active Substance: IBUPROFEN
     Indication: Sickle cell disease
     Route: 048
     Dates: start: 20200902
  7. PSEUDOEPHEDRINE (SUDAFED) [Concomitant]
     Indication: Priapism
     Route: 048
     Dates: start: 20200410, end: 20210331
  8. FOLIC ACID [Concomitant]
     Active Substance: FOLIC ACID
     Indication: Sickle cell disease
     Route: 048
     Dates: start: 20151229, end: 20201125
  9. DEFERASIROX [Concomitant]
     Active Substance: DEFERASIROX
     Indication: Iron overload
     Route: 048
     Dates: start: 20201125

REACTIONS (5)
  - Sickle cell anaemia with crisis [Recovered/Resolved]
  - Swelling face [Recovered/Resolved]
  - Headache [Recovered/Resolved]
  - Urticaria [Recovered/Resolved]
  - Rash [Recovered/Resolved]

NARRATIVE: CASE EVENT DATE: 20201112
